FAERS Safety Report 22359833 (Version 1)
Quarter: 2023Q2

REPORT INFORMATION
  Report Type: Report from Study
  Country: CA (occurrence: None)
  Receive Date: 20230524
  Receipt Date: 20230524
  Transmission Date: 20230722
  Serious: Yes (Other)
  Sender: FDA-Public Use
  Company Number: CA-PFIZER INC-202300197392

PATIENT
  Age: 70 Year
  Sex: Female

DRUGS (2)
  1. METHOTREXATE [Suspect]
     Active Substance: METHOTREXATE
     Indication: Product used for unknown indication
     Route: 048
  2. METHOTREXATE [Suspect]
     Active Substance: METHOTREXATE
     Route: 030

REACTIONS (1)
  - Breast cancer [Recovered/Resolved]
